FAERS Safety Report 24322216 (Version 2)
Quarter: 2024Q3

REPORT INFORMATION
  Report Type: Spontaneous
  Country: GB (occurrence: GB)
  Receive Date: 20240916
  Receipt Date: 20240920
  Transmission Date: 20241016
  Serious: Yes (Death, Hospitalization)
  Sender: CELLTRION
  Company Number: GB-CELLTRION INC.-2024GB021793

PATIENT

DRUGS (2)
  1. YUFLYMA [Suspect]
     Active Substance: ADALIMUMAB-AATY
     Indication: Rheumatoid arthritis
     Dosage: 40MG PEN PK2
     Route: 058
     Dates: start: 202406
  2. YUFLYMA [Suspect]
     Active Substance: ADALIMUMAB-AATY
     Dosage: 40MG PEN PK2
     Route: 058
     Dates: start: 202407

REACTIONS (2)
  - Death [Fatal]
  - Jaundice [Unknown]
